FAERS Safety Report 25796601 (Version 1)
Quarter: 2025Q3

REPORT INFORMATION
  Report Type: Spontaneous
  Country: US (occurrence: US)
  Receive Date: 20250912
  Receipt Date: 20250912
  Transmission Date: 20251021
  Serious: No
  Sender: SANOFI AVENTIS
  Company Number: US-SA-2025SA272712

PATIENT
  Sex: Female
  Weight: 46.36 kg

DRUGS (2)
  1. DUPIXENT [Suspect]
     Active Substance: DUPILUMAB
     Indication: Dermatitis atopic
     Dosage: 300 MG, QOW
     Route: 058
  2. SUBLOCADE [Suspect]
     Active Substance: BUPRENORPHINE

REACTIONS (4)
  - Weight decreased [Unknown]
  - Hypotension [Unknown]
  - Oedema [Unknown]
  - Urticaria [Unknown]
